FAERS Safety Report 16271125 (Version 3)
Quarter: 2019Q4

REPORT INFORMATION
  Report Type: Spontaneous
  Country: US (occurrence: US)
  Receive Date: 20190503
  Receipt Date: 20191105
  Transmission Date: 20200122
  Serious: Yes (Hospitalization)
  Sender: FDA-Public Use
  Company Number: US-BIOGEN-2019BI00731681

PATIENT
  Age: 15 Year
  Sex: Female

DRUGS (2)
  1. TYSABRI [Suspect]
     Active Substance: NATALIZUMAB
     Route: 065
  2. TYSABRI [Suspect]
     Active Substance: NATALIZUMAB
     Indication: MULTIPLE SCLEROSIS
     Route: 065
     Dates: start: 20181116, end: 20190308

REACTIONS (5)
  - Drug specific antibody present [Unknown]
  - Drug ineffective [Unknown]
  - Off label use [Unknown]
  - Multiple sclerosis relapse [Unknown]
  - Tumefactive multiple sclerosis [Unknown]

NARRATIVE: CASE EVENT DATE: 20190320
